FAERS Safety Report 4908967-X (Version None)
Quarter: 2006Q1

REPORT INFORMATION
  Report Type: 
  Country: None (occurrence: None)
  Receive Date: 20060209
  Receipt Date: 20060125
  Transmission Date: 20060701
  Serious: Yes (Death)
  Sender: FDA-Public Use
  Company Number: 2006-US-00520

PATIENT
  Age: 78 Year
  Sex: Male

DRUGS (1)
  1. CLOZAPINE [Suspect]
     Indication: AGITATION
     Dosage: 25 MG, QD, ORAL
     Route: 048
     Dates: start: 20051201, end: 20060117

REACTIONS (5)
  - ATRIAL FIBRILLATION [None]
  - CHOLECYSTITIS ACUTE [None]
  - DEMENTIA [None]
  - PNEUMONIA ASPIRATION [None]
  - SEPTIC SHOCK [None]
